FAERS Safety Report 25854157 (Version 1)
Quarter: 2025Q3

REPORT INFORMATION
  Report Type: Spontaneous
  Country: US (occurrence: US)
  Receive Date: 20250926
  Receipt Date: 20250926
  Transmission Date: 20251021
  Serious: No
  Sender: PFIZER
  Company Number: US-PFIZER INC-202300253678

PATIENT
  Age: 83 Year
  Sex: Male
  Weight: 77.56 kg

DRUGS (2)
  1. PAXLOVID [Suspect]
     Active Substance: NIRMATRELVIR\RITONAVIR
     Indication: COVID-19
     Dosage: ([NIRMATRELVIR 300 MG]/[RITONAVIR 100 MG]; 2X/DAY)
     Dates: start: 20230717
  2. SIMVASTATIN [Suspect]
     Active Substance: SIMVASTATIN
     Dosage: 10 MG, DAILY
     Route: 048

REACTIONS (1)
  - Contraindicated product administered [Unknown]

NARRATIVE: CASE EVENT DATE: 20230717
